FAERS Safety Report 14832242 (Version 1)
Quarter: 2018Q2

REPORT INFORMATION
  Report Type: Spontaneous
  Country: US (occurrence: US)
  Receive Date: 20180409
  Receipt Date: 20180409
  Transmission Date: 20180711
  Serious: Yes (Disabling, Other)
  Sender: FDA-Public Use
  Company Number: None

PATIENT
  Age: 21 Year
  Sex: Female
  Weight: 90 kg

DRUGS (10)
  1. MYDAYIS [Concomitant]
     Active Substance: AMPHETAMINE ASPARTATE\AMPHETAMINE SULFATE\DEXTROAMPHETAMINE SACCHARATE\DEXTROAMPHETAMINE SULFATE
  2. COMPLEX B VITAMIN [Concomitant]
  3. ALLEGRA [Concomitant]
     Active Substance: FEXOFENADINE HYDROCHLORIDE
  4. SERTRALINE 100 MG TABLETS [Suspect]
     Active Substance: SERTRALINE HYDROCHLORIDE
     Indication: GENERALISED ANXIETY DISORDER
     Dosage: ?          QUANTITY:2 TABLET(S);?
     Route: 048
  5. SERTRALINE 100 MG TABLETS [Suspect]
     Active Substance: SERTRALINE HYDROCHLORIDE
     Indication: MAJOR DEPRESSION
     Dosage: ?          QUANTITY:2 TABLET(S);?
     Route: 048
  6. FLONASE [Concomitant]
     Active Substance: FLUTICASONE PROPIONATE
  7. SERTRALINE [Concomitant]
     Active Substance: SERTRALINE HYDROCHLORIDE
  8. BIOTIN [Concomitant]
     Active Substance: BIOTIN
  9. BUPROPRION XL [Concomitant]
     Active Substance: BUPROPION
  10. TROKENDI [Concomitant]
     Active Substance: TOPIRAMATE

REACTIONS (5)
  - Somnolence [None]
  - Sensory level abnormal [None]
  - Disease recurrence [None]
  - Major depression [None]
  - Product substitution issue [None]

NARRATIVE: CASE EVENT DATE: 20180409
